APPROVED DRUG PRODUCT: NITROGLYCERIN
Active Ingredient: NITROGLYCERIN
Strength: 0.4MG/HR
Dosage Form/Route: FILM, EXTENDED RELEASE;TRANSDERMAL
Application: A074992 | Product #002
Applicant: MYLAN TECHNOLOGIES INC
Approved: Nov 12, 1999 | RLD: No | RS: No | Type: DISCN